FAERS Safety Report 6211514-6 (Version None)
Quarter: 2009Q2

REPORT INFORMATION
  Report Type: 
  Country: None (occurrence: None)
  Receive Date: 20090528
  Receipt Date: 20090514
  Transmission Date: 20091009
  Serious: Yes (Other)
  Sender: FDA-Public Use
  Company Number: 2009AP000358

PATIENT
  Age: 42 Year
  Sex: Male

DRUGS (6)
  1. DESMOPRESSIN ACETATE [Suspect]
     Dosage: 0.1 MG; TAB; PO; BID
     Route: 048
     Dates: start: 19800701
  2. LEVOTHYROXINE SODIUM [Concomitant]
  3. PREDNISONE TAB [Concomitant]
  4. SALBUTAMOL (SALBUTAMOL) [Concomitant]
  5. TESTOSTERONE [Concomitant]
  6. ANDROGENS (ANDROGENS) [Concomitant]

REACTIONS (24)
  - ABDOMINAL PAIN UPPER [None]
  - ANOREXIA [None]
  - ARTHRALGIA [None]
  - CHILLS [None]
  - CONFUSIONAL STATE [None]
  - DIZZINESS [None]
  - ELECTROLYTE IMBALANCE [None]
  - EPISTAXIS [None]
  - ERYTHEMA [None]
  - EYE INFECTION [None]
  - FATIGUE [None]
  - FLUID RETENTION [None]
  - FLUSHING [None]
  - HALLUCINATION [None]
  - HEADACHE [None]
  - HYPONATRAEMIA [None]
  - LETHARGY [None]
  - MIGRAINE [None]
  - MUSCLE ATROPHY [None]
  - MUSCULAR WEAKNESS [None]
  - NAUSEA [None]
  - RASH [None]
  - RESTLESSNESS [None]
  - WHEEZING [None]
